FAERS Safety Report 4536393-4 (Version None)
Quarter: 2004Q4

REPORT INFORMATION
  Report Type: 
  Country: None (occurrence: None)
  Receive Date: 20041223
  Receipt Date: 20040917
  Transmission Date: 20050328
  Serious: No
  Sender: FDA-Public Use
  Company Number: US-GLAXOSMITHKLINE-A0526189A

PATIENT
  Age: 54 Year
  Sex: Female

DRUGS (5)
  1. FLONASE [Suspect]
     Dosage: 4PUFF SINGLE DOSE
     Route: 045
     Dates: start: 20040916
  2. ALEVE [Concomitant]
     Route: 065
  3. ASPIRIN [Concomitant]
  4. HYDROCHLOROTHIAZIDE [Concomitant]
  5. MULTIVITAMIN [Concomitant]

REACTIONS (1)
  - HOARSENESS [None]
